FAERS Safety Report 15551994 (Version 1)
Quarter: 2018Q4

REPORT INFORMATION
  Report Type: Spontaneous
  Country: US (occurrence: US)
  Receive Date: 20181022
  Receipt Date: 20181022
  Transmission Date: 20190205
  Serious: Yes (Other)
  Sender: FDA-Public Use
  Company Number: None

PATIENT
  Age: 55 Year

DRUGS (2)
  1. INVOKANA [Suspect]
     Active Substance: CANAGLIFLOZIN
     Indication: DIABETES MELLITUS
     Route: 048
     Dates: start: 2017, end: 2018
  2. FARXIGA [Suspect]
     Active Substance: DAPAGLIFLOZIN PROPANEDIOL
     Indication: DIABETES MELLITUS
     Route: 048
     Dates: start: 2018

REACTIONS (11)
  - Pruritus genital [None]
  - Anorectal discomfort [None]
  - Vulvovaginal pruritus [None]
  - Anal fissure [None]
  - Genital burning sensation [None]
  - Perineal pain [None]
  - Vulvovaginal burning sensation [None]
  - Vulval laceration [None]
  - Skin laceration [None]
  - Perineal injury [None]
  - Anal pruritus [None]

NARRATIVE: CASE EVENT DATE: 20170301
